FAERS Safety Report 5987377-0 (Version None)
Quarter: 2008Q4

REPORT INFORMATION
  Report Type: 
  Country: None (occurrence: None)
  Receive Date: 20081209
  Receipt Date: 20081206
  Transmission Date: 20090506
  Serious: Yes (Death, Hospitalization)
  Sender: FDA-Public Use
  Company Number: PHHY2008CR31034

PATIENT
  Age: 77 Year
  Sex: Male

DRUGS (4)
  1. EXELON [Suspect]
     Indication: DEMENTIA ALZHEIMER'S TYPE
  2. SPIRON [Concomitant]
  3. PAXIL [Concomitant]
  4. ALTRULINE [Concomitant]

REACTIONS (2)
  - DEATH [None]
  - PHARYNGITIS [None]
